FAERS Safety Report 24613749 (Version 1)
Quarter: 2024Q4

REPORT INFORMATION
  Report Type: Spontaneous
  Country: KR (occurrence: KR)
  Receive Date: 20241113
  Receipt Date: 20241113
  Transmission Date: 20250114
  Serious: Yes (Other)
  Sender: NOVARTIS
  Company Number: KR-002147023-NVSC2024KR217968

PATIENT
  Sex: Male
  Weight: 83.5 kg

DRUGS (8)
  1. CYCLOSPORINE [Suspect]
     Active Substance: CYCLOSPORINE
     Indication: Graft versus host disease
     Dosage: 250 MG, QD
     Route: 048
     Dates: start: 20231018, end: 20231030
  2. CYCLOSPORINE [Suspect]
     Active Substance: CYCLOSPORINE
     Dosage: 200 MG, QD
     Route: 048
     Dates: start: 20231031
  3. CYCLOSPORINE [Suspect]
     Active Substance: CYCLOSPORINE
     Dosage: 100 MG, QD
     Route: 048
     Dates: start: 20231031, end: 20241025
  4. METHOTREXATE [Suspect]
     Active Substance: METHOTREXATE
     Indication: Prophylaxis against graft versus host disease
     Dosage: 30 MG, QD
     Route: 065
     Dates: start: 20231020, end: 20231025
  5. BUSULFAN [Suspect]
     Active Substance: BUSULFAN
     Indication: Acute myeloid leukaemia
     Dosage: 235.2 MG, QD
     Route: 065
     Dates: start: 20231013, end: 20231016
  6. CYCLOPHOSPHAMIDE [Suspect]
     Active Substance: CYCLOPHOSPHAMIDE
     Indication: Acute myeloid leukaemia
     Dosage: 5178 MG, QD
     Route: 065
     Dates: start: 20231012, end: 20231012
  7. LORAZEPAM [Suspect]
     Active Substance: LORAZEPAM
     Indication: Nausea
     Dosage: 0.5 MG, QD
     Route: 065
     Dates: start: 20231012, end: 20231012
  8. MESNA [Suspect]
     Active Substance: MESNA
     Indication: Premedication
     Dosage: 5100 MG, QD
     Route: 065
     Dates: start: 20231012, end: 20231012

REACTIONS (2)
  - Acute graft versus host disease in eye [Recovered/Resolved]
  - Acarodermatitis [Recovering/Resolving]

NARRATIVE: CASE EVENT DATE: 20231109
